FAERS Safety Report 21749797 (Version 1)
Quarter: 2022Q4

REPORT INFORMATION
  Report Type: Spontaneous
  Country: FR (occurrence: FR)
  Receive Date: 20221219
  Receipt Date: 20221219
  Transmission Date: 20230113
  Serious: Yes (Death, Hospitalization, Other)
  Sender: FDA-Public Use
  Company Number: FR-ViiV Healthcare Limited-FR2022GSK184974

PATIENT

DRUGS (5)
  1. DOLUTEGRAVIR [Suspect]
     Active Substance: DOLUTEGRAVIR
     Indication: HIV infection
     Dosage: UNK
     Dates: start: 201705
  2. DARUNAVIR\RITONAVIR [Suspect]
     Active Substance: DARUNAVIR\RITONAVIR
     Indication: HIV infection
     Dosage: UNK
     Dates: start: 201705
  3. MILTEFOSINE [Concomitant]
     Active Substance: MILTEFOSINE
     Indication: Visceral leishmaniasis
     Dosage: UNK
     Dates: start: 2020
  4. PENTAMIDINE [Concomitant]
     Active Substance: PENTAMIDINE
     Indication: Visceral leishmaniasis
     Dosage: UNK (EVERY TWO WEEK)
     Dates: start: 2020
  5. PENTAMIDINE [Concomitant]
     Active Substance: PENTAMIDINE
     Dosage: UNK, Z(EVERY MONTH)

REACTIONS (8)
  - Visceral leishmaniasis [Fatal]
  - Disease recurrence [Fatal]
  - Hepatic failure [Fatal]
  - Immune reconstitution inflammatory syndrome [Unknown]
  - Blood HIV RNA increased [Unknown]
  - Skin lesion [Not Recovered/Not Resolved]
  - Skin discolouration [Not Recovered/Not Resolved]
  - Staphylococcal bacteraemia [Unknown]

NARRATIVE: CASE EVENT DATE: 20200701
